FAERS Safety Report 4618520-3 (Version None)
Quarter: 2005Q1

REPORT INFORMATION
  Report Type: 
  Country: None (occurrence: None)
  Receive Date: 20050323
  Receipt Date: 20050314
  Transmission Date: 20050727
  Serious: Yes (Death, Life-Threatening, Other)
  Sender: FDA-Public Use
  Company Number: 2005EU000481

PATIENT
  Age: 49 Year
  Sex: Male

DRUGS (1)
  1. PROGRAF [Suspect]
     Indication: RENAL TRANSPLANT
     Dosage: 2.00 MG, BID

REACTIONS (7)
  - AORTIC VALVE DISEASE [None]
  - ASPERGILLOSIS [None]
  - CARDIAC GRANULOMA [None]
  - CARDIOGENIC SHOCK [None]
  - DRUG INTERACTION [None]
  - ENDOCARDITIS [None]
  - LUNG DISORDER [None]
